FAERS Safety Report 14941339 (Version 1)
Quarter: 2018Q2

REPORT INFORMATION
  Report Type: Spontaneous
  Country: US (occurrence: US)
  Receive Date: 20180526
  Receipt Date: 20180526
  Transmission Date: 20180711
  Serious: No
  Sender: FDA-Public Use
  Company Number: US-JNJFOC-20180502517

PATIENT
  Age: 35 Year
  Sex: Male
  Weight: 104.33 kg

DRUGS (1)
  1. TYLENOL REGULAR STRENGTH [Suspect]
     Active Substance: ACETAMINOPHEN
     Indication: PRODUCT USED FOR UNKNOWN INDICATION
     Dosage: 325 MG X 15 TABLETS WITHIN 8 HOURS
     Route: 048

REACTIONS (3)
  - Nausea [Recovered/Resolved]
  - Overdose [Unknown]
  - Abdominal pain [Recovered/Resolved]
